FAERS Safety Report 18354510 (Version 1)
Quarter: 2020Q4

REPORT INFORMATION
  Report Type: Spontaneous
  Country: US (occurrence: US)
  Receive Date: 20201006
  Receipt Date: 20201006
  Transmission Date: 20210114
  Serious: Yes (Other)
  Sender: FDA-Public Use
  Company Number: None

PATIENT

DRUGS (1)
  1. PACLITAXEL 50ML MDV [Suspect]
     Active Substance: PACLITAXEL
     Route: 042

REACTIONS (2)
  - Product container issue [None]
  - Accidental exposure to product [None]

NARRATIVE: CASE EVENT DATE: 20200921
